FAERS Safety Report 8561245-2 (Version None)
Quarter: 2012Q3

REPORT INFORMATION
  Report Type: 
  Country: None (occurrence: None)
  Receive Date: 20120802
  Receipt Date: 20120727
  Transmission Date: 20120928
  Serious: Yes (Hospitalization, Other)
  Sender: FDA-Public Use
  Company Number: US-ALEXION-A201201395

PATIENT
  Sex: Female
  Weight: 77.551 kg

DRUGS (27)
  1. SODIUM CHLORIDE [Concomitant]
     Dosage: 0.9% FLUSH AS DIRECTED DISP SYRIN
  2. BENADRYL [Concomitant]
     Dosage: 50 MG, QD AT BEDTIME
     Route: 048
  3. ACETAMINOPHEN (MAPAP) [Concomitant]
     Indication: PAIN
     Dosage: 325 MG, PRN 2 TABS Q4H
  4. BRIMONIDINE TARTRATE [Concomitant]
     Dosage: 0.2 %, BID EACH EYE
     Route: 047
  5. GLIPIZIDE [Concomitant]
     Dosage: 5 MG, QD
     Route: 048
  6. HEPARIN [Concomitant]
     Dosage: 10 UNIT/ML FLUSH AS DIRECTED
  7. ASPIRIN [Concomitant]
     Dosage: 81 MG, QD
     Route: 048
  8. CALCIUM + VITAMIN D [Concomitant]
     Dosage: 600 MG-200 TAB TID
     Route: 048
  9. TAB-A-VITE [Concomitant]
     Dosage: 1 TAB QD
     Route: 048
  10. BISACODYL (BISAC-EVAC) [Concomitant]
     Indication: CONSTIPATION
     Dosage: 10 MG, QD SUPPOSITORY
     Route: 054
  11. SIMVASTATIN [Concomitant]
     Dosage: 20 MG, QD AT BEDTIME
     Route: 048
  12. TIMOLOL MALEATE [Concomitant]
     Dosage: 0.5 %, BID 1 DROPP
     Route: 047
  13. OXYCODONE HCL [Concomitant]
     Indication: PAIN
     Dosage: 5 MG, PRN 1 TAB Q4H
     Route: 048
  14. SOLIRIS [Suspect]
     Indication: PAROXYSMAL NOCTURNAL HAEMOGLOBINURIA
     Dosage: 900 MG, Q2W
     Route: 042
     Dates: end: 20120425
  15. ALLOPURINOL [Concomitant]
     Dosage: 300 MG, QD
     Route: 048
  16. POTASSIUM CHLORIDE [Concomitant]
     Dosage: 10 MEQ 2 TABS, BID
  17. LOPERAMIDE [Concomitant]
     Indication: DIARRHOEA
     Dosage: 2 MG, PRN 2 CAPS QID
     Route: 048
  18. AMLODIPINE [Concomitant]
     Dosage: 5 MG, QD
     Route: 048
  19. FUROSEMIDE [Concomitant]
     Dosage: 40 MG, QD
     Route: 048
  20. MILK OF MAGNESIA TAB [Concomitant]
     Indication: CONSTIPATION
     Dosage: 400 MG/5ML GIVE 30 ML QD
     Route: 048
  21. ENEMA DISPOSABLE [Concomitant]
     Indication: CONSTIPATION
     Dosage: 1 ENEMA QD
     Route: 054
  22. PREDNISONE [Concomitant]
     Dosage: 1 MG (2 TABS), QD
     Route: 048
  23. NITROSTAT [Concomitant]
     Indication: CHEST PAIN
     Dosage: 0.4 MG, PRN 1 TAB Q5MINUTES UP TO 3 DOSES
     Route: 060
  24. ACETAMINOPHEN (MAPAP) [Concomitant]
     Indication: BODY TEMPERATURE INCREASED
     Dosage: NTE 3-4 GMS
     Route: 048
  25. OMEPRAZOLE [Concomitant]
     Dosage: 20 MG, QD
     Route: 048
  26. ARANESP [Concomitant]
     Dosage: 300 ?G, Q2W HOLD FOR HGB GREATER THAN (RECOMMEND 10)
     Route: 058
  27. ATENOLOL [Concomitant]
     Dosage: 25 MG, QD
     Route: 048

REACTIONS (15)
  - COLON CANCER [None]
  - CONGENITAL SPINAL CORD ANOMALY [None]
  - HAEMOGLOBIN DECREASED [None]
  - ESSENTIAL HYPERTENSION [None]
  - TYPE 1 DIABETES MELLITUS [None]
  - CLOSTRIDIAL INFECTION [None]
  - HAEMOLYTIC ANAEMIA ENZYME SPECIFIC [None]
  - OBSTRUCTIVE AIRWAYS DISORDER [None]
  - COLITIS [None]
  - ARTERIOSCLEROSIS CORONARY ARTERY [None]
  - GASTROINTESTINAL HAEMORRHAGE [None]
  - HYPERLIPIDAEMIA [None]
  - URINARY TRACT INFECTION [None]
  - GASTROINTESTINAL INFLAMMATION [None]
  - DEPRESSION [None]
